FAERS Safety Report 9795521 (Version 2)
Quarter: 2014Q1

REPORT INFORMATION
  Report Type: Spontaneous
  Country: AU (occurrence: AU)
  Receive Date: 20140103
  Receipt Date: 20140107
  Transmission Date: 20141002
  Serious: Yes (Other)
  Sender: FDA-Public Use
  Company Number: AU-JNJFOC-20131214882

PATIENT
  Sex: 0

DRUGS (1)
  1. INVEGA SUSTENNA [Suspect]
     Indication: PRODUCT USED FOR UNKNOWN INDICATION
     Route: 030

REACTIONS (5)
  - Parkinsonism [Not Recovered/Not Resolved]
  - Infertility [Not Recovered/Not Resolved]
  - Weight increased [Not Recovered/Not Resolved]
  - Akathisia [Not Recovered/Not Resolved]
  - Lethargy [Not Recovered/Not Resolved]
